FAERS Safety Report 17050585 (Version 2)
Quarter: 2019Q4

REPORT INFORMATION
  Report Type: Report from Study
  Country: JP (occurrence: JP)
  Receive Date: 20191119
  Receipt Date: 20191128
  Transmission Date: 20200122
  Serious: Yes (Hospitalization, Other)
  Sender: FDA-Public Use
  Company Number: JP-BAXTER-2019BAX023528

PATIENT
  Age: 79 Year
  Sex: Male
  Weight: 66.1 kg

DRUGS (18)
  1. DOXORUBICIN HYDROCHLORIDE. [Suspect]
     Active Substance: DOXORUBICIN HYDROCHLORIDE
     Indication: MANTLE CELL LYMPHOMA
     Dosage: UNKNOWN
     Route: 065
     Dates: start: 200709, end: 200709
  2. IMBRUVICA [Suspect]
     Active Substance: IBRUTINIB
     Dosage: 420 MG
     Route: 048
     Dates: start: 20171117, end: 20171204
  3. VINCRISTINE SULFATE. [Suspect]
     Active Substance: VINCRISTINE SULFATE
     Indication: MANTLE CELL LYMPHOMA
     Dosage: UNKNOWN
     Route: 065
     Dates: start: 200709, end: 200709
  4. BAKTAR [Concomitant]
     Active Substance: SULFAMETHOXAZOLE\TRIMETHOPRIM
     Indication: PROPHYLAXIS
     Dosage: FORM OF ADMINISTRATION: TABLET?1 GM
     Route: 048
  5. BENDAMUSTINE HYDROCHLORIDE. [Suspect]
     Active Substance: BENDAMUSTINE HYDROCHLORIDE
     Indication: PRODUCT USED FOR UNKNOWN INDICATION
     Dosage: UNKNOWN
     Route: 065
     Dates: start: 20161108, end: 20170704
  6. ENDOXAN 1G [Suspect]
     Active Substance: CYCLOPHOSPHAMIDE
     Indication: MANTLE CELL LYMPHOMA
     Dosage: UNKNOWN
     Route: 065
     Dates: start: 200709, end: 200709
  7. DEXAMETHASONE. [Suspect]
     Active Substance: DEXAMETHASONE
     Indication: MANTLE CELL LYMPHOMA
     Dosage: UNKNOWN
     Route: 065
     Dates: start: 200709, end: 200709
  8. METHOTREXATE. [Suspect]
     Active Substance: METHOTREXATE
     Indication: MANTLE CELL LYMPHOMA
     Dosage: UNKNOWN
     Route: 065
     Dates: start: 200709, end: 200709
  9. UBRETID [Concomitant]
     Active Substance: DISTIGMINE BROMIDE
     Indication: BENIGN PROSTATIC HYPERPLASIA
     Dosage: PERORAL MEDICINE?5 MG
     Route: 048
  10. PIPERACILLIN AND TAZOBACTAM [Concomitant]
     Active Substance: PIPERACILLIN SODIUM\TAZOBACTAM SODIUM
     Indication: PRODUCT USED FOR UNKNOWN INDICATION
     Dosage: 13.5 GM
     Route: 065
     Dates: start: 20170928, end: 20171002
  11. MAGMITT [Concomitant]
     Active Substance: MAGNESIUM OXIDE
     Indication: CONSTIPATION
     Dosage: FORM OF ADMINISTRATION: TABLET?1980 MG
     Route: 048
     Dates: start: 20171012, end: 20171204
  12. GLUCONSAN K [Concomitant]
     Active Substance: POTASSIUM GLUCONATE
     Indication: HYPOKALAEMIA
     Dosage: FORM OF ADMINISTRATION: FINE GRAIN?9 GM
     Route: 048
     Dates: start: 20171002, end: 20171012
  13. IMBRUVICA [Suspect]
     Active Substance: IBRUTINIB
     Indication: MANTLE CELL LYMPHOMA
     Dosage: 560 MG
     Route: 048
     Dates: start: 20170920, end: 20171106
  14. CYTARABINE. [Suspect]
     Active Substance: CYTARABINE
     Indication: MANTLE CELL LYMPHOMA
     Dosage: UNKNOWN
     Route: 065
     Dates: start: 200709, end: 200709
  15. BARACLUDE [Concomitant]
     Active Substance: ENTECAVIR
     Indication: PROPHYLAXIS
     Dosage: PERORAL MEDICINE?0.5 MG
     Route: 048
  16. RITUXIMAB. [Suspect]
     Active Substance: RITUXIMAB
     Indication: MANTLE CELL LYMPHOMA
     Dosage: UNKNOWN
     Route: 065
     Dates: start: 20161108, end: 20170704
  17. SILODOSIN. [Concomitant]
     Active Substance: SILODOSIN
     Indication: BENIGN PROSTATIC HYPERPLASIA
     Dosage: TABLET 4 MG
     Route: 048
  18. FEBURIC [Concomitant]
     Active Substance: FEBUXOSTAT
     Indication: PROPHYLAXIS
     Dosage: PERORAL MEDICINE 30 MG
     Route: 048
     Dates: start: 20170920, end: 20170927

REACTIONS (6)
  - Neutrophil count decreased [Not Recovered/Not Resolved]
  - Pneumonia bacterial [Recovered/Resolved]
  - Hypokalaemia [Recovered/Resolved]
  - Lymphocyte count decreased [Not Recovered/Not Resolved]
  - Constipation [Recovered/Resolved]
  - Platelet count decreased [Recovered/Resolved]

NARRATIVE: CASE EVENT DATE: 20170928
